FAERS Safety Report 9018319 (Version 1)
Quarter: 2013Q1

REPORT INFORMATION
  Report Type: Spontaneous
  Country: MY (occurrence: MY)
  Receive Date: 20130117
  Receipt Date: 20130117
  Transmission Date: 20140127
  Serious: Yes (Life-Threatening)
  Sender: FDA-Public Use
  Company Number: MY-ASTRAZENECA-2013SE03217

PATIENT
  Age: 52 Year
  Sex: Female
  Weight: 52 kg

DRUGS (1)
  1. VIMOVO [Suspect]
     Dosage: UNKNOWN DOSE, AFTER MEALS
     Route: 048
     Dates: start: 20130107, end: 20130107

REACTIONS (4)
  - Eye swelling [Unknown]
  - Cough [Unknown]
  - Lip swelling [Unknown]
  - Pruritus [Unknown]
